FAERS Safety Report 15329582 (Version 2)
Quarter: 2018Q3

REPORT INFORMATION
  Report Type: Report from Study
  Country: US (occurrence: US)
  Receive Date: 20180829
  Receipt Date: 20180919
  Transmission Date: 20181010
  Serious: Yes (Other)
  Sender: FDA-Public Use
  Company Number: US-ASTELLAS-2018US021701

PATIENT
  Sex: Female

DRUGS (3)
  1. ERLOTINIB [Suspect]
     Active Substance: ERLOTINIB
     Indication: MALIGNANT RESPIRATORY TRACT NEOPLASM
     Route: 065
  2. ERLOTINIB [Suspect]
     Active Substance: ERLOTINIB
     Dosage: UNK, EVERY OTHER DAY
     Route: 065
     Dates: start: 20180521
  3. ERLOTINIB [Suspect]
     Active Substance: ERLOTINIB
     Indication: MALIGNANT RESPIRATORY TRACT NEOPLASM
     Dosage: UNK, ONCE DAILY
     Route: 065
     Dates: start: 20180323, end: 20180520

REACTIONS (12)
  - Faecal volume decreased [Not Recovered/Not Resolved]
  - Loss of personal independence in daily activities [Not Recovered/Not Resolved]
  - Impaired healing [Unknown]
  - Diarrhoea [Unknown]
  - Muscular weakness [Not Recovered/Not Resolved]
  - Erythema [Unknown]
  - Coordination abnormal [Not Recovered/Not Resolved]
  - Decreased appetite [Unknown]
  - Skin haemorrhage [Unknown]
  - Erythema of eyelid [Unknown]
  - Balance disorder [Not Recovered/Not Resolved]
  - Haematochezia [Unknown]
